FAERS Safety Report 9242652 (Version 2)
Quarter: 2013Q2

REPORT INFORMATION
  Report Type: Spontaneous
  Country: JP (occurrence: JP)
  Receive Date: 20130419
  Receipt Date: 20130430
  Transmission Date: 20140414
  Serious: Yes (Other)
  Sender: FDA-Public Use
  Company Number: JP-GLAXOSMITHKLINE-B0883215A

PATIENT
  Age: 66 Year
  Sex: Female

DRUGS (8)
  1. ALLERMIST [Suspect]
     Indication: RHINITIS ALLERGIC
     Dosage: 2IUAX PER DAY
     Route: 045
     Dates: start: 20130404, end: 20130404
  2. ADOAIR [Concomitant]
     Route: 055
  3. MAGMITT [Concomitant]
     Route: 048
  4. GASMOTIN [Concomitant]
     Route: 048
  5. LORATADINE [Concomitant]
     Route: 048
  6. NU-LOTAN [Concomitant]
     Route: 048
  7. CHINESE MEDICINE [Concomitant]
     Route: 048
  8. CHINESE MEDICINE [Concomitant]
     Route: 048

REACTIONS (5)
  - Immobile [Unknown]
  - Feeling abnormal [Unknown]
  - Laryngeal discomfort [Unknown]
  - Asthma [Recovering/Resolving]
  - Hypersensitivity [Unknown]
